FAERS Safety Report 6966736-3 (Version None)
Quarter: 2010Q3

REPORT INFORMATION
  Report Type: 
  Country: None (occurrence: None)
  Receive Date: 20100906
  Receipt Date: 20100831
  Transmission Date: 20110219
  Serious: Yes (Hospitalization)
  Sender: FDA-Public Use
  Company Number: US-BRISTOL-MYERS SQUIBB COMPANY-15264062

PATIENT

DRUGS (1)
  1. MEGACE [Suspect]

REACTIONS (1)
  - GASTROINTESTINAL TUBE INSERTION [None]
